FAERS Safety Report 20260752 (Version 4)
Quarter: 2022Q1

REPORT INFORMATION
  Report Type: Spontaneous
  Country: US (occurrence: US)
  Receive Date: 20211230
  Receipt Date: 20220124
  Transmission Date: 20220423
  Serious: Yes (Other)
  Sender: FDA-Public Use
  Company Number: US-AMGEN-USASP2021204065

PATIENT
  Sex: Female

DRUGS (5)
  1. ARANESP [Suspect]
     Active Substance: DARBEPOETIN ALFA
     Indication: Nephrogenic anaemia
     Dosage: 50 MICROGRAM, QWK
     Route: 065
     Dates: start: 202107
  2. ARANESP [Suspect]
     Active Substance: DARBEPOETIN ALFA
     Indication: Nephrogenic anaemia
     Dosage: 75 MICROGRAM, QWK
     Route: 065
     Dates: start: 202109
  3. ARANESP [Suspect]
     Active Substance: DARBEPOETIN ALFA
     Indication: Chronic kidney disease
     Dosage: 100 MICROGRAM, QWK
     Route: 065
     Dates: start: 202110
  4. ARANESP [Suspect]
     Active Substance: DARBEPOETIN ALFA
     Dosage: 150 MICROGRAM, QWK
     Route: 065
     Dates: start: 202111
  5. ARANESP [Suspect]
     Active Substance: DARBEPOETIN ALFA
     Dosage: 250 MICROGRAM, QWK
     Route: 058
     Dates: start: 20211119

REACTIONS (2)
  - Myelodysplastic syndrome [Not Recovered/Not Resolved]
  - Therapy non-responder [Unknown]
